FAERS Safety Report 8000453-6 (Version None)
Quarter: 2011Q4

REPORT INFORMATION
  Report Type: 
  Country: None (occurrence: None)
  Receive Date: 20111222
  Receipt Date: 20111013
  Transmission Date: 20120403
  Serious: No
  Sender: FDA-Public Use
  Company Number: US-BRISTOL-MYERS SQUIBB COMPANY-15975410

PATIENT
  Age: 83 Year
  Sex: Female

DRUGS (11)
  1. FLUTICASONE FUROATE [Concomitant]
  2. ASPIRIN [Concomitant]
  3. ACETAMINOPHEN AND HYDROCODONE BITARTRATE [Concomitant]
     Dosage: 1DF = 5-500 UNS
  4. LORAZEPAM [Concomitant]
  5. APAP TAB [Concomitant]
     Dosage: 650 EXTENDED RELEASE
  6. PRAVACHOL [Suspect]
     Indication: HYPERLIPIDAEMIA
     Dosage: 1 DAILY IN THE EVENING 1 TAB PRAVASTATIN SODIUM 20MG
     Dates: start: 20100402, end: 20101201
  7. MECLIZINE [Concomitant]
  8. MULTIVITAMIN WITH MINERALS [Concomitant]
  9. SIMETHICONE [Concomitant]
  10. OXYBUTYNIN [Concomitant]
  11. AVEENO BATH [Concomitant]

REACTIONS (7)
  - DECREASED APPETITE [None]
  - FATIGUE [None]
  - CHROMATURIA [None]
  - RASH [None]
  - MYALGIA [None]
  - MUSCLE ATROPHY [None]
  - URINARY TRACT INFECTION [None]
